FAERS Safety Report 23333185 (Version 2)
Quarter: 2023Q4

REPORT INFORMATION
  Report Type: Report from Study
  Country: RU (occurrence: RU)
  Receive Date: 20231222
  Receipt Date: 20231229
  Transmission Date: 20240110
  Serious: Yes (Hospitalization)
  Sender: FDA-Public Use
  Company Number: RU-002147023-NVSC2023RU271969

PATIENT
  Age: 76 Year
  Sex: Female
  Weight: 104 kg

DRUGS (12)
  1. KISQALI [Suspect]
     Active Substance: RIBOCICLIB
     Indication: Hormone receptor positive HER2 negative breast cancer
     Dosage: 600 MG
     Route: 048
     Dates: start: 20231019, end: 20231109
  2. METOPROLOL [Concomitant]
     Active Substance: METOPROLOL
     Indication: Hypertension
     Dosage: 50 MG, TID
     Route: 065
     Dates: start: 2001
  3. SPIRONOLACTONE [Concomitant]
     Active Substance: SPIRONOLACTONE
     Indication: Hypertension
     Dosage: 25 MG (IN THE MORNING)
     Route: 065
     Dates: start: 2004, end: 20231121
  4. EDARBI CLO [Concomitant]
     Indication: Hypertension
     Dosage: UNK
     Route: 065
     Dates: start: 20190301
  5. MOXONIDINE [Concomitant]
     Active Substance: MOXONIDINE
     Indication: Hypertension
     Dosage: UP TO 0.6 MG, QD
     Route: 065
     Dates: start: 20190301, end: 20231121
  6. TRIMETAZIDINE [Concomitant]
     Active Substance: TRIMETAZIDINE
     Indication: Hypertension
     Dosage: 35 MG, BID (TWO TIMES PER DAY AS THREE MONTHS COURSES)
     Route: 065
     Dates: start: 2011, end: 20231121
  7. HUMALOG [Concomitant]
     Active Substance: INSULIN LISPRO
     Indication: Type 2 diabetes mellitus
     Dosage: UNK (12 UNITS (TIMES PER DAY AND ADDITIONAL INJECTIONS IN CASE OF HIGH BLOOD SUGAR))
     Route: 065
     Dates: start: 20140910
  8. LEVEMIR [Concomitant]
     Active Substance: INSULIN DETEMIR
     Indication: Type 2 diabetes mellitus
     Dosage: UNK (30+ 30 UNITS)
     Route: 065
     Dates: start: 20170914
  9. METFORMIN [Concomitant]
     Active Substance: METFORMIN HYDROCHLORIDE
     Indication: Type 2 diabetes mellitus
     Dosage: 1000 MG, BID
     Route: 065
     Dates: start: 20170725
  10. THIOCTIC ACID [Concomitant]
     Active Substance: THIOCTIC ACID
     Indication: Type 2 diabetes mellitus
     Dosage: UNK
     Route: 065
     Dates: start: 20220831
  11. ZOPICLONE [Concomitant]
     Active Substance: ZOPICLONE
     Indication: Insomnia
     Dosage: UNK (7.5)
     Route: 065
     Dates: start: 20201015
  12. ANASTROZOLE [Concomitant]
     Active Substance: ANASTROZOLE
     Indication: Product used for unknown indication
     Dosage: UNK
     Route: 065
     Dates: start: 20231208

REACTIONS (1)
  - Pulmonary embolism [Recovering/Resolving]

NARRATIVE: CASE EVENT DATE: 20231108
